FAERS Safety Report 8888998 (Version 1)
Quarter: 2012Q4

REPORT INFORMATION
  Report Type: 
  Country: IT (occurrence: IT)
  Receive Date: 20121106
  Receipt Date: 20121106
  Transmission Date: 20130627
  Serious: Yes (Hospitalization)
  Sender: FDA-Public Use
  Company Number: PHHY2012IT100338

PATIENT
  Sex: Female

DRUGS (2)
  1. GABAPENTIN [Suspect]
     Indication: DIABETIC NEUROPATHY
     Dosage: 400 mg, TID
     Route: 048
     Dates: start: 20120601
  2. OXYCONTIN [Suspect]
     Indication: DIABETIC NEUROPATHY
     Dosage: 40 mg, UNK
     Route: 048
     Dates: start: 20120601

REACTIONS (8)
  - Type 2 diabetes mellitus [Recovering/Resolving]
  - Vascular encephalopathy [Recovering/Resolving]
  - Dyskinesia [Recovering/Resolving]
  - Confusional state [Recovering/Resolving]
  - Chorea [Recovering/Resolving]
  - Bronchopneumonia [Recovering/Resolving]
  - Pyrexia [Recovering/Resolving]
  - Renal failure chronic [Recovering/Resolving]
